FAERS Safety Report 5916310-2 (Version None)
Quarter: 2008Q4

REPORT INFORMATION
  Report Type: 
  Country: None (occurrence: None)
  Receive Date: 20081013
  Receipt Date: 20081006
  Transmission Date: 20090506
  Serious: Yes (Other)
  Sender: FDA-Public Use
  Company Number: PHBS2008FR05924

PATIENT
  Sex: Male

DRUGS (4)
  1. COMTAN [Suspect]
     Indication: PARKINSON'S DISEASE
     Dosage: 600 MG/DAY
  2. PIRIBEDIL [Concomitant]
     Indication: PARKINSON'S DISEASE
     Dosage: 200 MG/DAY
  3. LEVODOPA [Concomitant]
     Indication: PARKINSON'S DISEASE
     Dosage: 300 MG/DAY
  4. CARBIDOPA [Concomitant]
     Indication: PARKINSON'S DISEASE
     Dosage: 75 MG/DAY

REACTIONS (6)
  - ADENOMA BENIGN [None]
  - BIOPSY COLON ABNORMAL [None]
  - COLITIS [None]
  - COLONOSCOPY ABNORMAL [None]
  - DEPRESSION [None]
  - DIARRHOEA [None]
